FAERS Safety Report 25666321 (Version 1)
Quarter: 2025Q3

REPORT INFORMATION
  Report Type: Spontaneous
  Country: EU (occurrence: EU)
  Receive Date: 20250811
  Receipt Date: 20250811
  Transmission Date: 20251021
  Serious: Yes (Other)
  Sender: MYLAN
  Company Number: None

PATIENT
  Age: 34 Year
  Sex: Male

DRUGS (4)
  1. XANAX [Suspect]
     Active Substance: ALPRAZOLAM
     Indication: Product used for unknown indication
     Dates: start: 20250417, end: 20250417
  2. XANAX [Suspect]
     Active Substance: ALPRAZOLAM
     Route: 048
     Dates: start: 20250417, end: 20250417
  3. XANAX [Suspect]
     Active Substance: ALPRAZOLAM
     Route: 048
     Dates: start: 20250417, end: 20250417
  4. XANAX [Suspect]
     Active Substance: ALPRAZOLAM
     Dates: start: 20250417, end: 20250417

REACTIONS (3)
  - Drug use disorder [Unknown]
  - Cognitive disorder [Unknown]
  - Dysarthria [Unknown]

NARRATIVE: CASE EVENT DATE: 20250417
